FAERS Safety Report 9059647 (Version 1)
Quarter: 2013Q3

REPORT INFORMATION
  Report Type: Spontaneous
  Country: US (occurrence: None)
  Receive Date: 20130206
  Receipt Date: 20130206
  Transmission Date: 20140515
  Serious: Yes (Life-Threatening)
  Sender: FDA-Public Use
  Company Number: None

PATIENT
  Age: 80 Year
  Sex: Male
  Weight: 59.88 kg

DRUGS (9)
  1. EVEROLIMUS [Suspect]
     Indication: PROSTATE CANCER
     Route: 048
     Dates: start: 20130104
  2. BICALUTAMIDE [Suspect]
     Indication: PROSTATE CANCER
     Route: 048
     Dates: start: 20130104
  3. MAALOX [Concomitant]
  4. VIVONEX TEN [Concomitant]
  5. GLUCOSAMINE HCL [Concomitant]
  6. CHONDROITIN [Concomitant]
  7. REGLAN [Concomitant]
  8. MULTIVITAMIN [Concomitant]
  9. PANCREATIN [Concomitant]

REACTIONS (7)
  - Fatigue [None]
  - Chills [None]
  - Pyrexia [None]
  - Hypotension [None]
  - Urinary tract infection [None]
  - Diarrhoea [None]
  - Pneumonia [None]
